FAERS Safety Report 10561320 (Version 3)
Quarter: 2014Q4

REPORT INFORMATION
  Report Type: Report from Study
  Country: US (occurrence: US)
  Receive Date: 20141103
  Receipt Date: 20141104
  Transmission Date: 20150529
  Serious: Yes (Hospitalization, Other)
  Sender: FDA-Public Use
  Company Number: US-SA-2014SA138381

PATIENT
  Age: 49 Year
  Sex: Female

DRUGS (2)
  1. AUBAGIO [Suspect]
     Active Substance: TERIFLUNOMIDE
     Indication: MULTIPLE SCLEROSIS
     Route: 048
     Dates: start: 20141014, end: 20141021
  2. AUBAGIO [Suspect]
     Active Substance: TERIFLUNOMIDE
     Indication: MULTIPLE SCLEROSIS
     Route: 048
     Dates: start: 20140826

REACTIONS (6)
  - Nausea [Recovering/Resolving]
  - Vomiting [Unknown]
  - Swelling [Not Recovered/Not Resolved]
  - Dyspnoea [Recovering/Resolving]
  - Multiple sclerosis relapse [Unknown]
  - Diarrhoea [Unknown]
